FAERS Safety Report 6134131-5 (Version None)
Quarter: 2009Q1

REPORT INFORMATION
  Report Type: 
  Country: None (occurrence: None)
  Receive Date: 20090326
  Receipt Date: 20090324
  Transmission Date: 20090719
  Serious: Yes (Hospitalization)
  Sender: FDA-Public Use
  Company Number: DE-ABBOTT-09P-062-0564286-00

PATIENT
  Weight: 57 kg

DRUGS (5)
  1. HUMIRA [Suspect]
     Indication: ANKYLOSING SPONDYLITIS
     Route: 058
     Dates: start: 20080616
  2. RANTUDIL [Concomitant]
     Indication: PAIN
     Route: 048
     Dates: start: 19910601
  3. RANTUDIL [Concomitant]
     Indication: ANKYLOSING SPONDYLITIS
  4. IODTHYROX [Concomitant]
     Indication: GOITRE
     Route: 048
     Dates: start: 19990901
  5. ROPINIROLE [Concomitant]
     Indication: RESTLESS LEGS SYNDROME
     Dates: start: 20060301

REACTIONS (5)
  - ALTERED STATE OF CONSCIOUSNESS [None]
  - FALL [None]
  - HEADACHE [None]
  - NAUSEA [None]
  - SYNCOPE [None]
